FAERS Safety Report 5733696-2 (Version None)
Quarter: 2008Q2

REPORT INFORMATION
  Report Type: 
  Country: None (occurrence: None)
  Receive Date: 20080509
  Receipt Date: 20080429
  Transmission Date: 20081010
  Serious: No
  Sender: FDA-Public Use
  Company Number: A0718659A

PATIENT
  Age: 85 Year
  Sex: Female

DRUGS (3)
  1. ALTABAX [Suspect]
     Route: 061
     Dates: start: 20080326, end: 20080326
  2. METOPROLOL TARTRATE [Concomitant]
  3. PREVACID [Concomitant]

REACTIONS (4)
  - APPLICATION SITE PAIN [None]
  - ERYTHEMA [None]
  - SKIN INJURY [None]
  - SKIN IRRITATION [None]
